FAERS Safety Report 4654623-5 (Version None)
Quarter: 2005Q2

REPORT INFORMATION
  Report Type: 
  Country: None (occurrence: None)
  Receive Date: 20050504
  Receipt Date: 20050504
  Transmission Date: 20051028
  Serious: Yes (Life-Threatening, Hospitalization)
  Sender: FDA-Public Use
  Company Number: None

PATIENT
  Age: 54 Year
  Sex: Male
  Weight: 116 kg

DRUGS (11)
  1. WARFARIN [Suspect]
     Indication: DEEP VEIN THROMBOSIS
     Dosage: 2MG?  DAILY  ORAL
     Route: 048
     Dates: start: 20040101, end: 20041110
  2. PAROXETINE [Concomitant]
  3. LISINOPRIL [Concomitant]
  4. GABAPENTIN [Concomitant]
  5. ALLEGRA [Concomitant]
  6. FUROSEMIDE [Concomitant]
  7. GLYBURIDE [Concomitant]
  8. HYZAAR [Concomitant]
  9. AMITRIPTYLINE HCL TAB [Concomitant]
  10. IMDUR [Concomitant]
  11. AMLODIPINE [Concomitant]

REACTIONS (4)
  - ABNORMAL BEHAVIOUR [None]
  - CEREBRAL HAEMORRHAGE [None]
  - FALL [None]
  - SUBARACHNOID HAEMORRHAGE [None]
